FAERS Safety Report 6772255-X (Version None)
Quarter: 2010Q2

REPORT INFORMATION
  Report Type: 
  Country: None (occurrence: None)
  Receive Date: 20100616
  Receipt Date: 20090625
  Transmission Date: 20101027
  Serious: No
  Sender: FDA-Public Use
  Company Number: US-ASTRAZENECA-2009UW17766

PATIENT
  Sex: Female
  Weight: 65.8 kg

DRUGS (3)
  1. PULMICORT RESPULES [Suspect]
     Indication: EMPHYSEMA
     Dosage: 0.5/2 ML
     Route: 055
     Dates: start: 20080301
  2. ALBUTEROL [Concomitant]
  3. ADVIL LIQUI-GELS [Concomitant]

REACTIONS (3)
  - DRUG DOSE OMISSION [None]
  - EYE PAIN [None]
  - HEADACHE [None]
